FAERS Safety Report 5115677-5 (Version None)
Quarter: 2006Q3

REPORT INFORMATION
  Report Type: 
  Country: None (occurrence: None)
  Receive Date: 20060926
  Receipt Date: 20060926
  Transmission Date: 20061208
  Serious: Yes (Other)
  Sender: FDA-Public Use
  Company Number: None

PATIENT
  Age: 65 Year
  Sex: Male
  Weight: 79.4 kg

DRUGS (2)
  1. ZOCOR [Suspect]
  2. MECLIZINE HCL [Concomitant]

REACTIONS (1)
  - VERTIGO [None]
